FAERS Safety Report 9039026 (Version 1)
Quarter: 2013Q1

REPORT INFORMATION
  Report Type: Spontaneous
  Country: US (occurrence: None)
  Receive Date: 20130123
  Receipt Date: 20130123
  Transmission Date: 20140127
  Serious: Yes (Other)
  Sender: FDA-Public Use
  Company Number: None

PATIENT
  Age: 18 Year
  Sex: Male
  Weight: 63.05 kg

DRUGS (1)
  1. RISPERDAL [Suspect]
     Indication: PSYCHOTIC DISORDER
     Dosage: SHOT  2 WEEKS  BUCCAL
     Route: 002
     Dates: start: 20121206, end: 20130118

REACTIONS (5)
  - Pain [None]
  - Fatigue [None]
  - Heart rate irregular [None]
  - Dysstasia [None]
  - Activities of daily living impaired [None]
